FAERS Safety Report 9747748 (Version 1)
Quarter: 2013Q4

REPORT INFORMATION
  Report Type: Spontaneous
  Country: BR (occurrence: BR)
  Receive Date: 20131212
  Receipt Date: 20131212
  Transmission Date: 20140711
  Serious: Yes (Other)
  Sender: FDA-Public Use
  Company Number: BR-ACCORD-020694

PATIENT
  Age: 72 Year
  Sex: Female
  Weight: 62 kg

DRUGS (14)
  1. PACLITAXEL [Suspect]
     Indication: CHEMOTHERAPY
     Route: 042
     Dates: start: 20130517, end: 20130719
  2. DIPHENHYDRAMINE [Concomitant]
     Route: 042
     Dates: start: 20130517, end: 20130719
  3. DIPYRONE [Concomitant]
     Dosage: 40 GTS
     Route: 048
     Dates: start: 20130514, end: 20130614
  4. RANITIDINE [Concomitant]
     Route: 042
     Dates: start: 20130517, end: 20130719
  5. OMEPRAZOLE [Concomitant]
     Route: 048
     Dates: start: 20130514, end: 20130614
  6. LACTULOSE [Concomitant]
     Route: 048
     Dates: start: 20130514, end: 20130614
  7. METACLOPRAMIDE [Concomitant]
     Route: 048
     Dates: start: 20130514, end: 20130524
  8. ONDANSETRON [Concomitant]
     Route: 042
     Dates: start: 20130517, end: 20130719
  9. ONDANSETRON [Concomitant]
     Route: 048
     Dates: start: 20130518, end: 20130722
  10. NYSTATIN [Concomitant]
     Route: 048
     Dates: start: 20130515, end: 20130529
  11. TRAMADOL [Concomitant]
     Route: 048
     Dates: start: 20130514, end: 20130614
  12. CARBOPLATIN [Concomitant]
     Indication: CHEMOTHERAPY
     Route: 042
     Dates: start: 20130517, end: 20130719
  13. DEXAMETHASONE [Concomitant]
     Route: 048
     Dates: start: 20130516, end: 20130722
  14. DEXAMETHASONE [Concomitant]
     Route: 042
     Dates: start: 20130517, end: 20130719

REACTIONS (5)
  - Dyspnoea [Recovered/Resolved]
  - Erythema [Recovered/Resolved]
  - Feeling hot [Recovered/Resolved]
  - Back pain [Recovered/Resolved]
  - Abdominal pain [Recovered/Resolved]
